FAERS Safety Report 5656041-X (Version None)
Quarter: 2008Q1

REPORT INFORMATION
  Report Type: 
  Country: None (occurrence: None)
  Receive Date: 20080307
  Receipt Date: 20080225
  Transmission Date: 20080703
  Serious: Yes (Other)
  Sender: FDA-Public Use
  Company Number: US-PFIZER INC-2008019123

PATIENT
  Sex: Male
  Weight: 117.9 kg

DRUGS (7)
  1. CHANTIX [Suspect]
     Indication: SMOKING CESSATION THERAPY
  2. ZESTORETIC [Concomitant]
  3. METOPROLOL TARTRATE [Concomitant]
  4. AVANDIA [Concomitant]
  5. LYRICA [Concomitant]
  6. LANTUS [Concomitant]
  7. CRESTOR [Concomitant]

REACTIONS (1)
  - BLOOD GLUCOSE INCREASED [None]
